FAERS Safety Report 25470166 (Version 2)
Quarter: 2025Q3

REPORT INFORMATION
  Report Type: Report from Study
  Country: US (occurrence: US)
  Receive Date: 20250623
  Receipt Date: 20250718
  Transmission Date: 20251021
  Serious: No
  Sender: MERCK SHARP & DOHME LLC
  Company Number: US-009507513-2266342

PATIENT

DRUGS (4)
  1. SOTATERCEPT [Suspect]
     Active Substance: SOTATERCEPT
     Indication: Pulmonary arterial hypertension
     Route: 065
     Dates: start: 202503
  2. SOTATERCEPT [Suspect]
     Active Substance: SOTATERCEPT
     Route: 065
     Dates: start: 202504
  3. SOTATERCEPT [Suspect]
     Active Substance: SOTATERCEPT
     Route: 065
     Dates: start: 202506
  4. SOTATERCEPT [Suspect]
     Active Substance: SOTATERCEPT

REACTIONS (2)
  - Off label use [Unknown]
  - No adverse event [Unknown]
